FAERS Safety Report 7739327 (Version 3)
Quarter: 2016Q1

REPORT INFORMATION
  Report Type: Spontaneous
  Country: US (occurrence: US)
  Receive Date: 20101224
  Receipt Date: 20160302
  Transmission Date: 20160526
  Serious: No
  Sender: FDA-Public Use
  Company Number: US-RB-017231-10

PATIENT
  Age: 10 Year
  Sex: Male

DRUGS (1)
  1. CHILDRENS MUCINEX CHEST CONGESTION [Suspect]
     Active Substance: GUAIFENESIN
     Dosage: 10ML. PATIENT TOOK TWO DOSES. 2 TEASPOONS IN THE MORNING AND 2 TEASPOONS IN THE AFTERNOON,FREQUENCY
     Route: 048

REACTIONS (3)
  - Malaise [Recovered/Resolved]
  - Epistaxis [Recovered/Resolved]
  - Productive cough [Recovered/Resolved]

NARRATIVE: CASE EVENT DATE: 20101221
